FAERS Safety Report 7408781-X (Version None)
Quarter: 2011Q2

REPORT INFORMATION
  Report Type: 
  Country: None (occurrence: None)
  Receive Date: 20110412
  Receipt Date: 20110223
  Transmission Date: 20111010
  Serious: Yes (Other)
  Sender: FDA-Public Use
  Company Number: AR-AMGEN-QUU423809

PATIENT
  Age: 56 Year
  Sex: Female
  Weight: 52 kg

DRUGS (5)
  1. DEFLAZACORT [Concomitant]
     Dosage: 6 MG, UNK
     Route: 065
  2. PANTOPRAZOLE SODIUM [Concomitant]
     Dosage: 25 MG, QD
     Route: 065
  3. ALPRAZOLAM [Concomitant]
     Dosage: 2 MG, UNK
     Route: 065
  4. LOTRIAL                            /00574901/ [Concomitant]
     Indication: HYPERTENSION
     Dosage: 10 MG, UNK
     Route: 065
  5. ENBREL [Suspect]
     Indication: RHEUMATOID ARTHRITIS
     Dosage: 25 MG, 2 TIMES/WK
     Route: 058
     Dates: start: 20070511, end: 20100401

REACTIONS (2)
  - DEPRESSION [None]
  - NEUROFIBROMA [None]
